FAERS Safety Report 7606416-4 (Version None)
Quarter: 2011Q3

REPORT INFORMATION
  Report Type: 
  Country: None (occurrence: None)
  Receive Date: 20110712
  Receipt Date: 20110712
  Transmission Date: 20111222
  Serious: Yes (Hospitalization)
  Sender: FDA-Public Use
  Company Number: None

PATIENT
  Age: 55 Year
  Sex: Male
  Weight: 106.4 kg

DRUGS (1)
  1. PENTAMIDINE ISETHIONATE [Suspect]
     Indication: ANTIFUNGAL PROPHYLAXIS
     Dosage: 300 MG INHALE
     Route: 055
     Dates: start: 20110319, end: 20110319

REACTIONS (6)
  - WHEEZING [None]
  - HYPOPNOEA [None]
  - RESPIRATORY DISTRESS [None]
  - CHRONIC OBSTRUCTIVE PULMONARY DISEASE [None]
  - BLOOD PRESSURE INCREASED [None]
  - USE OF ACCESSORY RESPIRATORY MUSCLES [None]
